FAERS Safety Report 5963710-0 (Version None)
Quarter: 2008Q4

REPORT INFORMATION
  Report Type: 
  Country: None (occurrence: None)
  Receive Date: 20081119
  Receipt Date: 20080722
  Transmission Date: 20090506
  Serious: No
  Sender: FDA-Public Use
  Company Number: WAES 0807USA04434

PATIENT
  Age: 72 Year
  Sex: Female

DRUGS (8)
  1. JANUVIA [Suspect]
     Indication: TYPE 2 DIABETES MELLITUS
     Dosage: 100 MG/DAILY/PO : 50 MG/DAILY/PO
     Route: 048
     Dates: start: 20070601, end: 20070601
  2. JANUVIA [Suspect]
     Indication: TYPE 2 DIABETES MELLITUS
     Dosage: 100 MG/DAILY/PO : 50 MG/DAILY/PO
     Route: 048
     Dates: start: 20080101
  3. INDERAL [Concomitant]
  4. LOTENSIN [Concomitant]
  5. PREVACID [Concomitant]
  6. ZOCOR [Concomitant]
  7. ZYRTEC [Concomitant]
  8. HYDROCHLOROTHIAZIDE [Concomitant]

REACTIONS (1)
  - DIZZINESS [None]
